FAERS Safety Report 11342426 (Version 1)
Quarter: 2015Q3

REPORT INFORMATION
  Report Type: Spontaneous
  Country: DE (occurrence: DE)
  Receive Date: 20150805
  Receipt Date: 20150805
  Transmission Date: 20151125
  Serious: Yes (Other)
  Sender: FDA-Public Use
  Company Number: DE-TEVA-582766GER

PATIENT
  Age: 40 Year
  Sex: Male

DRUGS (11)
  1. DIAZEPAM. [Suspect]
     Active Substance: DIAZEPAM
     Dosage: 5 MILLIGRAM DAILY;
     Route: 048
     Dates: start: 20100108
  2. DIAZEPAM. [Interacting]
     Active Substance: DIAZEPAM
     Dosage: 9 MILLIGRAM DAILY;
     Route: 048
     Dates: start: 20091224, end: 20100105
  3. ZYPREXA [Interacting]
     Active Substance: OLANZAPINE
     Dosage: 30 MILLIGRAM DAILY;
     Route: 048
     Dates: start: 20091216
  4. ABILIFY [Concomitant]
     Active Substance: ARIPIPRAZOLE
     Dosage: 20 MILLIGRAM DAILY;
     Route: 048
     Dates: start: 20091123, end: 20091201
  5. DIAZEPAM. [Interacting]
     Active Substance: DIAZEPAM
     Dosage: 14 MILLIGRAM DAILY;
     Route: 048
     Dates: start: 20091216, end: 20091224
  6. DIAZEPAM. [Interacting]
     Active Substance: DIAZEPAM
     Dosage: 7 MILLIGRAM DAILY;
     Route: 048
     Dates: start: 20100105, end: 20100108
  7. ABILIFY [Concomitant]
     Active Substance: ARIPIPRAZOLE
     Dosage: 15 MILLIGRAM DAILY;
     Route: 048
     Dates: start: 20091119, end: 20091123
  8. ABILIFY [Concomitant]
     Active Substance: ARIPIPRAZOLE
     Dosage: 30 MILLIGRAM DAILY;
     Route: 048
     Dates: start: 20091201
  9. DIAZEPAM. [Interacting]
     Active Substance: DIAZEPAM
     Dosage: 40 MILLIGRAM DAILY;
     Route: 048
     Dates: start: 20091117, end: 20091203
  10. DIAZEPAM. [Interacting]
     Active Substance: DIAZEPAM
     Dosage: 20 MILLIGRAM DAILY;
     Route: 048
     Dates: start: 20091203, end: 20091216
  11. ZYPREXA [Interacting]
     Active Substance: OLANZAPINE
     Dosage: 40 MILLIGRAM DAILY;
     Route: 048
     Dates: start: 20091117, end: 20091216

REACTIONS (3)
  - Hepatic function abnormal [Recovered/Resolved]
  - Hepatic enzyme increased [Recovered/Resolved]
  - Drug interaction [Recovered/Resolved]

NARRATIVE: CASE EVENT DATE: 20091123
